FAERS Safety Report 9605099 (Version 2)
Quarter: 2013Q4

REPORT INFORMATION
  Report Type: Spontaneous
  Country: US (occurrence: US)
  Receive Date: 20131008
  Receipt Date: 20131018
  Transmission Date: 20140711
  Serious: No
  Sender: FDA-Public Use
  Company Number: US-TEVA-436736USA

PATIENT
  Age: 60 Year
  Sex: Male

DRUGS (1)
  1. COPAXONE [Suspect]
     Indication: MULTIPLE SCLEROSIS
     Dates: start: 20100511, end: 201302

REACTIONS (3)
  - Skin ulcer [Not Recovered/Not Resolved]
  - Back disorder [Not Recovered/Not Resolved]
  - Weight increased [Unknown]
